FAERS Safety Report 16343720 (Version 2)
Quarter: 2019Q3

REPORT INFORMATION
  Report Type: Spontaneous
  Country: US (occurrence: US)
  Receive Date: 20190522
  Receipt Date: 20190815
  Transmission Date: 20191004
  Serious: No
  Sender: FDA-Public Use
  Company Number: US-PFIZER INC-2019215293

PATIENT
  Age: 63 Year
  Sex: Female
  Weight: 40.82 kg

DRUGS (6)
  1. DETROL [Suspect]
     Active Substance: TOLTERODINE TARTRATE
     Indication: POLLAKIURIA
     Dosage: UNK (HALF A TABLET A DAY)
  2. DETROL [Suspect]
     Active Substance: TOLTERODINE TARTRATE
     Dosage: 2 MG, UNK (2MG X1)
  3. DETROL [Suspect]
     Active Substance: TOLTERODINE TARTRATE
     Indication: PAIN
     Dosage: 2 MG, 2X/DAY
     Route: 048
     Dates: start: 2018
  4. AMBIEN [Concomitant]
     Active Substance: ZOLPIDEM TARTRATE
     Dosage: 10 MG, UNK
     Dates: start: 2006
  5. DETROL [Suspect]
     Active Substance: TOLTERODINE TARTRATE
     Indication: HYPERTONIC BLADDER
     Dosage: UNK, 1X/DAY
  6. TYLENOL WITH CODEINE [Concomitant]
     Active Substance: ACETAMINOPHEN\CODEINE PHOSPHATE
     Dosage: UNK
     Dates: start: 2001

REACTIONS (5)
  - Drug ineffective [Unknown]
  - Therapeutic response unexpected [Recovered/Resolved]
  - Intentional product misuse [Recovered/Resolved]
  - Dry skin [Unknown]
  - Pre-existing condition improved [Recovered/Resolved]

NARRATIVE: CASE EVENT DATE: 2018
